FAERS Safety Report 10034136 (Version 2)
Quarter: 2014Q2

REPORT INFORMATION
  Report Type: Spontaneous
  Country: US (occurrence: None)
  Receive Date: 20140321
  Receipt Date: 20140402
  Transmission Date: 20141212
  Serious: Yes (Death)
  Sender: FDA-Public Use
  Company Number: FK201400860

PATIENT
  Age: 67 Year
  Sex: Male
  Weight: 163 kg

DRUGS (17)
  1. HEPARIN SODIUM [Suspect]
     Indication: THROMBOSIS PROPHYLAXIS
     Route: 040
     Dates: start: 20140125, end: 20140125
  2. HECTOROL (DOXERCALCIFEROL) [Concomitant]
  3. VENOFER (SACCHARATED IRON OXIDE) [Concomitant]
  4. ALBUTEROL (SALBUTAMOL) [Concomitant]
  5. ALLOPURINOL (ALLOPURINOL) [Concomitant]
  6. ASPIRIN (E.C.) (ACETYLSALICYLIC ACID) [Concomitant]
  7. CALCIUM ACETATE (CALCIUM ACETATE) [Concomitant]
  8. ARANESP (DARBEPOETIN ALFA) [Concomitant]
  9. ERGOCALCIFEROL (ERGOCALCIFEROL) [Concomitant]
  10. VITAMIN D (ERGOCALCIFEROL) [Concomitant]
  11. REGULAR INSULIN (INSULIN BOVINE) [Concomitant]
  12. LORTAB (VICODIN) [Concomitant]
  13. NEPHROCAP (SOLIVITO N /01801401/) [Concomitant]
  14. SODIUM BICARBONATE (SODIUM BICARBONATE) [Concomitant]
  15. PAXIL (PIROXICAM) [Concomitant]
  16. TRAZODONE (TRAZODONE) [Concomitant]
  17. VERAPAMIL (VERAPAMIL) [Concomitant]

REACTIONS (1)
  - Subdural haematoma [None]
